FAERS Safety Report 24841228 (Version 2)
Quarter: 2025Q3

REPORT INFORMATION
  Report Type: Report from Study
  Country: US (occurrence: US)
  Receive Date: 20250114
  Receipt Date: 20250809
  Transmission Date: 20251021
  Serious: Yes (Hospitalization, Other)
  Sender: ALEXION PHARMACEUTICALS
  Company Number: US-AstraZeneca-CH-00783695A

PATIENT
  Sex: Male
  Weight: 59.42 kg

DRUGS (1)
  1. OSIMERTINIB [Suspect]
     Active Substance: OSIMERTINIB
     Indication: Lung neoplasm malignant
     Dates: start: 20230522

REACTIONS (4)
  - Arthritis [Unknown]
  - Wound sepsis [Unknown]
  - Cerebrovascular accident [Unknown]
  - Onychoclasis [Unknown]
